FAERS Safety Report 5834276-0 (Version None)
Quarter: 2008Q3

REPORT INFORMATION
  Report Type: 
  Country: None (occurrence: None)
  Receive Date: 20080805
  Receipt Date: 20080730
  Transmission Date: 20090109
  Serious: Yes (Other)
  Sender: FDA-Public Use
  Company Number: PHHY2008BE16109

PATIENT
  Sex: Male

DRUGS (3)
  1. RASILEZ [Suspect]
     Indication: HYPERTENSION
     Dosage: 150 MG, UNK
     Route: 048
     Dates: start: 20080701, end: 20080701
  2. CATAPRES [Concomitant]
  3. BETA BLOCKING AGENTS [Concomitant]

REACTIONS (3)
  - ARTHRALGIA [None]
  - DEPRESSION [None]
  - LISTLESS [None]
